FAERS Safety Report 10312195 (Version 2)
Quarter: 2014Q3

REPORT INFORMATION
  Report Type: Spontaneous
  Country: JP (occurrence: JP)
  Receive Date: 20140718
  Receipt Date: 20140812
  Transmission Date: 20150326
  Serious: Yes (Other)
  Sender: FDA-Public Use
  Company Number: JP-ROCHE-1436322

PATIENT
  Age: 70 Year
  Sex: Female

DRUGS (3)
  1. SOVRIAD [Suspect]
     Active Substance: SIMEPREVIR
     Indication: PRODUCT USED FOR UNKNOWN INDICATION
     Route: 048
     Dates: end: 20140620
  2. PEGASYS [Suspect]
     Active Substance: PEGINTERFERON ALFA-2A
     Indication: PRODUCT USED FOR UNKNOWN INDICATION
     Route: 058
  3. COPEGUS [Suspect]
     Active Substance: RIBAVIRIN
     Indication: PRODUCT USED FOR UNKNOWN INDICATION
     Route: 048

REACTIONS (1)
  - Atrial fibrillation [Recovered/Resolved]

NARRATIVE: CASE EVENT DATE: 2014
